FAERS Safety Report 24178825 (Version 2)
Quarter: 2025Q1

REPORT INFORMATION
  Report Type: Spontaneous
  Country: US (occurrence: US)
  Receive Date: 20240806
  Receipt Date: 20250204
  Transmission Date: 20250409
  Serious: Yes (Hospitalization, Other)
  Sender: PFIZER
  Company Number: US-PFIZER INC-202400228450

PATIENT
  Age: 67 Year
  Sex: Female

DRUGS (27)
  1. XELJANZ XR [Suspect]
     Active Substance: TOFACITINIB CITRATE
     Dosage: 11 MG, DAILY
     Route: 048
     Dates: start: 202101, end: 202501
  2. METHOTREXATE [Concomitant]
     Active Substance: METHOTREXATE
  3. SYNTHROID [Concomitant]
     Active Substance: LEVOTHYROXINE SODIUM
  4. KETOCONAZOLE [Concomitant]
     Active Substance: KETOCONAZOLE
  5. IBUPROFEN [Concomitant]
     Active Substance: IBUPROFEN
  6. CHLORHEXIDINE GLUCONATE [Concomitant]
     Active Substance: CHLORHEXIDINE GLUCONATE
  7. CLOBETASOL [Concomitant]
     Active Substance: CLOBETASOL
  8. TRELEGY ELLIPTA [Concomitant]
     Active Substance: FLUTICASONE FUROATE\UMECLIDINIUM BROMIDE\VILANTEROL TRIFENATATE
  9. TIZANIDINE HYDROCHLORIDE [Concomitant]
     Active Substance: TIZANIDINE HYDROCHLORIDE
  10. ATORVASTATIN CALCIUM [Concomitant]
     Active Substance: ATORVASTATIN CALCIUM
  11. ACETAMINOPHEN\HYDROCODONE [Concomitant]
     Active Substance: ACETAMINOPHEN\HYDROCODONE
  12. VITAMIN D3 [Concomitant]
     Active Substance: CHOLECALCIFEROL
  13. OMEPRAZOLE [Concomitant]
     Active Substance: OMEPRAZOLE
  14. VITAMIN B12 [Concomitant]
     Active Substance: CYANOCOBALAMIN
  15. ASPIRIN [Concomitant]
     Active Substance: ASPIRIN
  16. METAMUCIL [Concomitant]
     Active Substance: PLANTAGO SEED
  17. GABAPENTIN [Concomitant]
     Active Substance: GABAPENTIN
  18. TYLENOL [Concomitant]
     Active Substance: ACETAMINOPHEN
  19. FOLIC ACID [Concomitant]
     Active Substance: FOLIC ACID
  20. METHYLPREDNISOLONE [Concomitant]
     Active Substance: METHYLPREDNISOLONE
  21. KETOTIFEN FUMARATE [Concomitant]
     Active Substance: KETOTIFEN FUMARATE
  22. COLACE [Concomitant]
     Active Substance: DOCUSATE SODIUM
  23. CLINDAMYCIN HYDROCHLORIDE [Concomitant]
     Active Substance: CLINDAMYCIN HYDROCHLORIDE
  24. FLUTICASONE PROPIONATE [Concomitant]
     Active Substance: FLUTICASONE PROPIONATE
  25. ALBUTEROL SULFATE [Concomitant]
     Active Substance: ALBUTEROL SULFATE
  26. LIOTHYRONINE SODIUM [Concomitant]
     Active Substance: LIOTHYRONINE SODIUM
  27. CALCIUM\CHOLECALCIFEROL [Concomitant]
     Active Substance: CALCIUM\CHOLECALCIFEROL

REACTIONS (7)
  - Nerve injury [Recovering/Resolving]
  - Pain in extremity [Recovering/Resolving]
  - Dysstasia [Recovering/Resolving]
  - Arthralgia [Recovering/Resolving]
  - Limb deformity [Recovering/Resolving]
  - Spinal disorder [Recovering/Resolving]
  - Joint surgery [Recovering/Resolving]

NARRATIVE: CASE EVENT DATE: 20240118
